FAERS Safety Report 17153751 (Version 1)
Quarter: 2019Q4

REPORT INFORMATION
  Report Type: Spontaneous
  Country: JP (occurrence: JP)
  Receive Date: 20191213
  Receipt Date: 20191213
  Transmission Date: 20200122
  Serious: Yes (Other)
  Sender: FDA-Public Use
  Company Number: JP-BAYER-2019-220295

PATIENT
  Sex: Male

DRUGS (2)
  1. ZOMETA [Concomitant]
     Active Substance: ZOLEDRONIC ACID
     Indication: PATHOLOGICAL FRACTURE PROPHYLAXIS
     Dosage: UNK
     Dates: start: 201906
  2. XOFIGO [Suspect]
     Active Substance: RADIUM RA-223 DICHLORIDE
     Dosage: 5TIMES ADMINISTRATION, Q4WK
     Dates: start: 201907, end: 201911

REACTIONS (2)
  - Prostatic specific antigen increased [None]
  - Prostate cancer [None]

NARRATIVE: CASE EVENT DATE: 201911
